FAERS Safety Report 18596109 (Version 28)
Quarter: 2023Q1

REPORT INFORMATION
  Report Type: Report from Study
  Country: DE (occurrence: DE)
  Receive Date: 20201209
  Receipt Date: 20230313
  Transmission Date: 20230417
  Serious: Yes (Hospitalization, Other)
  Sender: FDA-Public Use
  Company Number: DE-ROCHE-2669047

PATIENT
  Age: 52 Year
  Sex: Female
  Weight: 62 kg

DRUGS (63)
  1. PANTOPRAZOLE [Suspect]
     Active Substance: PANTOPRAZOLE
     Indication: Product used for unknown indication
     Dosage: 40 MILLIGRAM, PRN
     Route: 065
  2. PANTOPRAZOLE [Suspect]
     Active Substance: PANTOPRAZOLE
     Dosage: 40 MILLIGRAM
     Route: 065
  3. PANTOPRAZOLE [Suspect]
     Active Substance: PANTOPRAZOLE
     Dosage: 40 MILLIGRAM
     Route: 065
  4. OCREVUS [Suspect]
     Active Substance: OCRELIZUMAB
     Indication: Relapsing-remitting multiple sclerosis
     Dosage: 300 MILLIGRAM
     Route: 042
     Dates: start: 20180523
  5. OCREVUS [Suspect]
     Active Substance: OCRELIZUMAB
     Indication: Secondary progressive multiple sclerosis
     Dosage: 600 MILLIGRAM
     Route: 042
     Dates: start: 20201028
  6. OCREVUS [Suspect]
     Active Substance: OCRELIZUMAB
     Indication: Rheumatoid arthritis
     Dosage: 600 MILLIGRAM, 288 DAYS
     Route: 042
     Dates: start: 20210812
  7. OCREVUS [Suspect]
     Active Substance: OCRELIZUMAB
     Dosage: 300 MILLIGRAM
     Route: 042
     Dates: start: 20181212
  8. OCREVUS [Suspect]
     Active Substance: OCRELIZUMAB
     Dosage: 600 MILLIGRAM (FREQUENCY DEVIATING FROM SPC)
     Route: 042
     Dates: start: 20180523
  9. OCREVUS [Suspect]
     Active Substance: OCRELIZUMAB
     Dosage: 600 MILLIGRAM (FREQUENCY WAS 182 DAYS)
     Route: 042
     Dates: start: 20180523
  10. OCREVUS [Suspect]
     Active Substance: OCRELIZUMAB
     Dosage: 600 MILLIGRAM
     Route: 042
     Dates: start: 20190606
  11. OCREVUS [Suspect]
     Active Substance: OCRELIZUMAB
     Dosage: 600 MILLIGRAM (5TH INFUSION)
     Route: 042
     Dates: start: 20191205
  12. CORTISONE [Suspect]
     Active Substance: CORTISONE
     Indication: Product used for unknown indication
     Dosage: ALTERNATIVE TO VOLON A
     Route: 065
     Dates: start: 20200810, end: 20200813
  13. COMIRNATY [Suspect]
     Active Substance: TOZINAMERAN
     Indication: COVID-19 immunisation
     Dosage: SINGLE DOSE
     Route: 065
     Dates: start: 20210415, end: 20210415
  14. COMIRNATY [Suspect]
     Active Substance: TOZINAMERAN
     Dosage: UNK (DOSE 2, SINGLE),
     Route: 065
     Dates: start: 20210526, end: 20210526
  15. Novalgin [Concomitant]
     Dosage: UNK
     Route: 065
  16. Novalgin [Concomitant]
     Dosage: UNK UNK, PRN (AS REQUIRED)
     Route: 065
  17. ALBUTEROL [Concomitant]
     Active Substance: ALBUTEROL
     Dosage: UNK
     Route: 065
  18. ALBUTEROL [Concomitant]
     Active Substance: ALBUTEROL
     Dosage: UNK
     Route: 065
  19. ALBUTEROL [Concomitant]
     Active Substance: ALBUTEROL
     Dosage: UNK, PRN (AS REQUIRED)
     Route: 065
  20. DOMPERIDONE [Concomitant]
     Active Substance: DOMPERIDONE
     Dosage: UNK
     Route: 065
  21. DOMPERIDONE [Concomitant]
     Active Substance: DOMPERIDONE
     Dosage: UNK
     Route: 065
  22. DOMPERIDONE [Concomitant]
     Active Substance: DOMPERIDONE
     Dosage: UNK, PRN (AS REQUIRED)
     Route: 065
  23. IBUPROFEN [Concomitant]
     Active Substance: IBUPROFEN
     Dosage: UNK
     Route: 065
  24. IBUPROFEN [Concomitant]
     Active Substance: IBUPROFEN
     Dosage: UNK
     Route: 065
  25. IBUPROFEN [Concomitant]
     Active Substance: IBUPROFEN
     Dosage: UNK, PRN (AS REQUIRED)
     Route: 065
  26. TRIAMCINOLONE ACETONIDE [Concomitant]
     Active Substance: TRIAMCINOLONE ACETONIDE
     Indication: Muscle spasticity
     Dosage: Q3MONTHS (INTO SPINAL FLUID), START 09-APR-2020
     Route: 065
  27. TRIAMCINOLONE ACETONIDE [Concomitant]
     Active Substance: TRIAMCINOLONE ACETONIDE
     Dosage: 100 MG, Q3MONTHS (SPINAL FLUID), 09-APR-2020
     Route: 065
  28. TRIAMCINOLONE ACETONIDE [Concomitant]
     Active Substance: TRIAMCINOLONE ACETONIDE
     Dosage: 70 MG,3 MIN (ADMIN. INTO LIQUOR CEREBROSINALIS)
     Route: 065
     Dates: start: 20190403
  29. TRIAMCINOLONE ACETONIDE [Concomitant]
     Active Substance: TRIAMCINOLONE ACETONIDE
     Dosage: 70 MG, Q3MONTHS(ADMIN. LIQUOR CEREBROSINALIS)
     Route: 065
     Dates: start: 201911
  30. TRIAMCINOLONE ACETONIDE [Concomitant]
     Active Substance: TRIAMCINOLONE ACETONIDE
     Dosage: 70MG, Q3MONTHS(ADMIN. INTO LIQUOR CEREBROSINALIS)
     Route: 065
     Dates: start: 20190626, end: 20190626
  31. TRIAMCINOLONE ACETONIDE [Concomitant]
     Active Substance: TRIAMCINOLONE ACETONIDE
     Dosage: UNK
     Route: 037
     Dates: start: 20190911
  32. TRIAMCINOLONE ACETONIDE [Concomitant]
     Active Substance: TRIAMCINOLONE ACETONIDE
     Dosage: 100MG,Q3MONTHS, ADMIN. INTO LIQUOR CEREBROSINALIS
     Route: 037
     Dates: start: 20200409
  33. TRIAMCINOLONE ACETONIDE [Concomitant]
     Active Substance: TRIAMCINOLONE ACETONIDE
     Dosage: 100MG 3 MIN(ADMIN. INTO LIQUOR CEREBROSINALIS)
     Route: 065
     Dates: start: 20181004
  34. CANNABIS SATIVA FLOWERING TOP [Concomitant]
     Active Substance: CANNABIS SATIVA FLOWERING TOP
     Dosage: QD (SEVERAL TIMES PER DAY AND IN THE NIGHT)
     Route: 065
  35. CANNABIS SATIVA FLOWERING TOP [Concomitant]
     Active Substance: CANNABIS SATIVA FLOWERING TOP
     Dosage: QD, SEVERAL TIMES PER DAY AND IN THE NIGHT
     Route: 065
  36. CANNABIS SATIVA FLOWERING TOP [Concomitant]
     Active Substance: CANNABIS SATIVA FLOWERING TOP
     Dosage: SEVERAL TIME IN NIGHT CANNABIS BLOSSOM 3-5X DAILY
     Route: 065
  37. CHOLECALCIFEROL [Concomitant]
     Active Substance: CHOLECALCIFEROL
     Dosage: 20000 IU, QW (1 PER WEEK EVERY 3 MONTHS)
     Route: 065
  38. OXYCODONE [Concomitant]
     Active Substance: OXYCODONE
     Dosage: 5MG AS NEEDED(UP TO 4 TABLETS DAILY) AS REQUIRED
     Route: 065
  39. NITROFURANTOIN [Concomitant]
     Active Substance: NITROFURANTOIN
     Indication: Product used for unknown indication
     Dosage: 100 MILLIGRAM, TID
     Route: 065
  40. HEPARIN [Concomitant]
     Active Substance: HEPARIN SODIUM
     Dosage: UNK
     Route: 065
     Dates: start: 20200618
  41. NABIXIMOLS [Concomitant]
     Active Substance: NABIXIMOLS
     Dosage: UNK, PRN (AS REQUIRED)
     Route: 065
  42. ESTRIOL [Concomitant]
     Active Substance: ESTRIOL
     Dosage: 1 MILLIGRAM, QW (CURRENTLY PAUSED)
     Route: 065
  43. FOLIC ACID [Concomitant]
     Active Substance: FOLIC ACID
     Dosage: 5 MILLIGRAM, QD
     Route: 065
  44. PANTOPRAZOLE SODIUM [Concomitant]
     Active Substance: PANTOPRAZOLE SODIUM
     Indication: Product used for unknown indication
     Dosage: 40 MILLIGRAM, PRN (AS REQUIRED)
     Route: 065
  45. PANTOPRAZOLE SODIUM [Concomitant]
     Active Substance: PANTOPRAZOLE SODIUM
     Dosage: 40 MILLIGRAM, QD
     Route: 065
  46. XIPAMIDE [Concomitant]
     Active Substance: XIPAMIDE
     Dosage: 10 MILLIGRAM
     Route: 065
  47. FOSFOMYCIN [Concomitant]
     Active Substance: FOSFOMYCIN
     Indication: Urinary tract infection
     Dosage: 3000 MILLIGRAM, PRN (AS REQUIRED )
     Route: 065
  48. FOSFOMYCIN [Concomitant]
     Active Substance: FOSFOMYCIN
     Dosage: 3000 MILLIGRAM, 14 DAYS
     Route: 065
     Dates: start: 20181111
  49. SULFAMETHOXAZOLE\TRIMETHOPRIM [Concomitant]
     Active Substance: SULFAMETHOXAZOLE\TRIMETHOPRIM
     Dosage: UNK
     Route: 065
  50. CORTISONE [Concomitant]
     Active Substance: CORTISONE
     Indication: Premedication
     Dosage: UNK
     Route: 065
  51. CORTISONE [Concomitant]
     Active Substance: CORTISONE
     Dosage: 100 MILLIGRAM, Q3MONTHS
     Route: 065
  52. CORTISONE [Concomitant]
     Active Substance: CORTISONE
     Dosage: UNK
     Route: 065
     Dates: start: 20190405
  53. INFLUENZA VIRUS VACCINE [Concomitant]
     Active Substance: INFLUENZA VIRUS VACCINE
     Indication: Product used for unknown indication
     Dosage: UNK
     Route: 065
     Dates: start: 20181018, end: 20181018
  54. D-MANNOSE [Concomitant]
     Dosage: UNK, QD
     Route: 065
  55. FORMOTEROL FUMARATE [Concomitant]
     Active Substance: FORMOTEROL FUMARATE
     Dosage: 12 MICROGRAM
     Route: 065
  56. CEFUROXIME [Concomitant]
     Active Substance: CEFUROXIME
     Indication: Nasopharyngitis
     Dosage: UNK
     Route: 065
     Dates: start: 20190227, end: 20190301
  57. RAMIPRIL [Concomitant]
     Active Substance: RAMIPRIL
     Dosage: 1.25 MILLIGRAM, BID
     Route: 065
  58. RAMIPRIL [Concomitant]
     Active Substance: RAMIPRIL
     Dosage: 1.25 MILLIGRAM, BID (1-0-1)
     Route: 065
     Dates: start: 20190701
  59. RAMIPRIL [Concomitant]
     Active Substance: RAMIPRIL
     Dosage: 1.25 MILLIGRAM, PRN (AS REQUIRED)
     Route: 065
  60. RAMIPRIL [Concomitant]
     Active Substance: RAMIPRIL
     Dosage: 1.25 MILLIGRAM, QD (IN THE EVENING)
     Route: 065
  61. COTRIMOXAZOLE [Concomitant]
     Active Substance: SULFAMETHOXAZOLE\TRIMETHOPRIM
     Dosage: UNK
     Route: 065
  62. LACTIC ACID, DL-\SODIUM LACTATE [Concomitant]
     Active Substance: LACTIC ACID, DL-\SODIUM LACTATE
     Dosage: UNK
     Route: 065
  63. LACTIC ACID, DL-\SODIUM LACTATE [Concomitant]
     Active Substance: LACTIC ACID, DL-\SODIUM LACTATE
     Dosage: UNK
     Route: 065

REACTIONS (97)
  - Gastritis erosive [Recovered/Resolved]
  - Cataract [Not Recovered/Not Resolved]
  - Cystitis [Not Recovered/Not Resolved]
  - Urinary tract infection bacterial [Recovered/Resolved]
  - Multiple sclerosis relapse [Recovered/Resolved]
  - Fracture [Recovered/Resolved]
  - Cardiac failure [Not Recovered/Not Resolved]
  - Cushing^s syndrome [Not Recovered/Not Resolved]
  - Urogenital fistula [Recovered/Resolved]
  - Dry skin [Recovered/Resolved]
  - Muscle spasticity [Not Recovered/Not Resolved]
  - Uterine enlargement [Recovered/Resolved]
  - Initial insomnia [Not Recovered/Not Resolved]
  - Alopecia [Recovered/Resolved]
  - Weight increased [Not Recovered/Not Resolved]
  - Fluid retention [Recovered/Resolved]
  - Periorbital swelling [Recovered/Resolved]
  - Body fat disorder [Not Recovered/Not Resolved]
  - Irritability [Not Recovered/Not Resolved]
  - Muscular weakness [Recovering/Resolving]
  - Bone pain [Not Recovered/Not Resolved]
  - Calcinosis [Recovered/Resolved]
  - Vaccination site warmth [Recovered/Resolved]
  - Vaccination site erythema [Recovered/Resolved]
  - Bone density increased [Not Recovered/Not Resolved]
  - Gait disturbance [Not Recovered/Not Resolved]
  - Pain in extremity [Recovered/Resolved]
  - Mobility decreased [Recovered/Resolved]
  - B-lymphocyte count decreased [Unknown]
  - Endometrial thickening [Recovering/Resolving]
  - Cystitis noninfective [Recovered/Resolved]
  - Arthralgia [Recovered/Resolved]
  - Diarrhoea [Recovered/Resolved]
  - Rash [Recovered/Resolved]
  - Blood cholesterol increased [Not Recovered/Not Resolved]
  - Dizziness [Recovered/Resolved]
  - Asthenia [Not Recovered/Not Resolved]
  - Paraesthesia [Not Recovered/Not Resolved]
  - Seborrhoeic keratosis [Unknown]
  - Migraine [Unknown]
  - Osteoporosis [Not Recovered/Not Resolved]
  - Chronic gastritis [Not Recovered/Not Resolved]
  - SARS-CoV-2 antibody test negative [Not Recovered/Not Resolved]
  - Condition aggravated [Not Recovered/Not Resolved]
  - Insomnia [Not Recovered/Not Resolved]
  - Gamma-glutamyltransferase increased [Recovered/Resolved]
  - Blood pressure increased [Recovered/Resolved]
  - Urine odour abnormal [Recovering/Resolving]
  - Platelet count decreased [Recovered/Resolved]
  - Chronic gastritis [Not Recovered/Not Resolved]
  - Platelet count increased [Recovered/Resolved]
  - Wound [Recovered/Resolved]
  - Vitamin D decreased [Recovered/Resolved]
  - Throat irritation [Recovered/Resolved]
  - Tooth fracture [Recovered/Resolved]
  - Dyspepsia [Recovered/Resolved]
  - Chills [Recovered/Resolved]
  - Vulvovaginal dryness [Unknown]
  - Oedema [Recovered/Resolved]
  - Depression [Recovered/Resolved]
  - Fatigue [Recovered/Resolved]
  - Inappropriate affect [Recovered/Resolved]
  - Abdominal distension [Not Recovered/Not Resolved]
  - Erythema [Recovered/Resolved]
  - Influenza like illness [Recovered/Resolved]
  - Constipation [Recovered/Resolved]
  - Pain [Not Recovered/Not Resolved]
  - Eyelid ptosis [Recovered/Resolved]
  - Skin induration [Recovered/Resolved]
  - Fall [Unknown]
  - Feeling hot [Recovered/Resolved]
  - Oral discomfort [Recovered/Resolved]
  - Listless [Recovered/Resolved]
  - Back pain [Not Recovered/Not Resolved]
  - Emotional distress [Recovered/Resolved]
  - Depressed mood [Recovered/Resolved]
  - Low density lipoprotein increased [Not Recovered/Not Resolved]
  - Meningism [Recovered/Resolved]
  - Anal incontinence [Recovered/Resolved]
  - Sinus disorder [Recovered/Resolved]
  - Sensation of foreign body [Recovered/Resolved]
  - Ligament sprain [Recovered/Resolved]
  - Illness [Recovered/Resolved]
  - Vision blurred [Not Recovered/Not Resolved]
  - Dysstasia [Not Recovered/Not Resolved]
  - Oral herpes [Recovered/Resolved]
  - Anal inflammation [Recovered/Resolved]
  - Folate deficiency [Recovered/Resolved]
  - Urinary tract infection [Recovered/Resolved]
  - Intestinal atony [Unknown]
  - Pain [Recovered/Resolved]
  - Nasopharyngitis [Recovered/Resolved]
  - Lymphocyte count decreased [Recovered/Resolved]
  - Pyrexia [Unknown]
  - Faeces soft [Recovered/Resolved]
  - B-lymphocyte count abnormal [Recovered/Resolved]
  - Throat tightness [Recovered/Resolved]

NARRATIVE: CASE EVENT DATE: 20180523
